FAERS Safety Report 9680539 (Version 1)
Quarter: 2013Q4

REPORT INFORMATION
  Report Type: Spontaneous
  Country: US (occurrence: US)
  Receive Date: 20131111
  Receipt Date: 20131111
  Transmission Date: 20140711
  Serious: No
  Sender: FDA-Public Use
  Company Number: US-PFIZER INC-2013317007

PATIENT
  Age: 52 Year
  Sex: Female
  Weight: 64.85 kg

DRUGS (3)
  1. GEODON [Suspect]
     Indication: FEELING OF RELAXATION
     Dosage: 80 MG, 1X/DAY
     Route: 048
  2. GEODON [Suspect]
     Indication: INSOMNIA
  3. AMBIEN [Concomitant]
     Dosage: UNK

REACTIONS (2)
  - Blood cholesterol increased [Unknown]
  - Off label use [Not Recovered/Not Resolved]
